FAERS Safety Report 8982330 (Version 1)
Quarter: 2012Q4

REPORT INFORMATION
  Report Type: 
  Country: US (occurrence: US)
  Receive Date: 20121212
  Receipt Date: 20121212
  Transmission Date: 20130627
  Serious: Yes (Death)
  Sender: FDA-Public Use
  Company Number: US-ASTELLAS-1106389

PATIENT
  Sex: Male

DRUGS (2)
  1. TARCEVA [Suspect]
     Indication: PANCREATIC CARCINOMA
     Route: 065
     Dates: start: 20090716, end: 20090810
  2. GEMZAR [Concomitant]

REACTIONS (3)
  - Death [Fatal]
  - Asthenia [Unknown]
  - Drug ineffective [Unknown]
